FAERS Safety Report 20381859 (Version 2)
Quarter: 2022Q1

REPORT INFORMATION
  Report Type: Spontaneous
  Country: US (occurrence: US)
  Receive Date: 20220127
  Receipt Date: 20220204
  Transmission Date: 20220423
  Serious: No
  Sender: FDA-Public Use
  Company Number: US-UNITED THERAPEUTICS-UNT-2022-001486

PATIENT
  Age: 54 Year
  Sex: Male

DRUGS (3)
  1. REMODULIN [Suspect]
     Active Substance: TREPROSTINIL
     Indication: Pulmonary arterial hypertension
     Dosage: UNK, CONTINUING
     Route: 058
     Dates: start: 20200314
  2. REMODULIN [Suspect]
     Active Substance: TREPROSTINIL
     Dosage: 0.0785 ?G/KG, CONTINUING
     Route: 058
  3. MACITENTAN [Concomitant]
     Active Substance: MACITENTAN
     Indication: Pulmonary arterial hypertension
     Dosage: 10 MG, QD
     Route: 048
     Dates: start: 20150317

REACTIONS (4)
  - Infusion site extravasation [Unknown]
  - Infusion site discomfort [Unknown]
  - Infusion site pain [Not Recovered/Not Resolved]
  - Infusion site swelling [Not Recovered/Not Resolved]

NARRATIVE: CASE EVENT DATE: 20220115
